FAERS Safety Report 24062533 (Version 2)
Quarter: 2024Q3

REPORT INFORMATION
  Report Type: Spontaneous
  Country: JP (occurrence: JP)
  Receive Date: 20240708
  Receipt Date: 20240726
  Transmission Date: 20241017
  Serious: Yes (Other)
  Sender: CARA THERAPEUTICS
  Company Number: JP-CARA THERAPEUTICS, INC.-2024-00323-JP

PATIENT
  Age: 73 Year
  Sex: Male

DRUGS (11)
  1. KORSUVA [Suspect]
     Active Substance: DIFELIKEFALIN ACETATE
     Indication: Pruritus
     Dosage: 25 ?G/ (25 ?G/     )
     Route: 042
     Dates: start: 20240219, end: 20240520
  2. DARBEPOETIN ALFA [Concomitant]
     Active Substance: DARBEPOETIN ALFA
  3. TRELAGLIPTIN SUCCINATE [Concomitant]
     Active Substance: TRELAGLIPTIN SUCCINATE
  4. RUPAFIN [Concomitant]
     Active Substance: RUPATADINE FUMARATE
  5. AZILSARTAN KAMEDOXOMIL [Concomitant]
     Active Substance: AZILSARTAN KAMEDOXOMIL
  6. CILOSTAZOL [Concomitant]
     Active Substance: CILOSTAZOL
  7. NIFEDIPINE [Concomitant]
     Active Substance: NIFEDIPINE
  8. ALFACALCIDOL [Concomitant]
     Active Substance: ALFACALCIDOL
  9. VONOPRAZAN FUMARATE [Concomitant]
     Active Substance: VONOPRAZAN FUMARATE
  10. ASPIRIN [Concomitant]
     Active Substance: ASPIRIN
  11. NICORANDIL [Concomitant]
     Active Substance: NICORANDIL

REACTIONS (2)
  - Mental status changes [Recovered/Resolved]
  - Altered state of consciousness [Recovered/Resolved]
